FAERS Safety Report 4899735-6 (Version None)
Quarter: 2006Q1

REPORT INFORMATION
  Report Type: 
  Country: None (occurrence: None)
  Receive Date: 20060131
  Receipt Date: 20060117
  Transmission Date: 20060701
  Serious: Yes (Death, Hospitalization)
  Sender: FDA-Public Use
  Company Number: A-US2006-11432

PATIENT
  Age: 65 Year
  Sex: Female
  Weight: 106.1 kg

DRUGS (4)
  1. TRACLEER [Suspect]
     Indication: PULMONARY HYPERTENSION
     Dosage: 62.5 MG, BID; ORAL
     Route: 048
     Dates: start: 20051017
  2. COUMADIN [Suspect]
     Dosage: 5 MG,
     Dates: start: 20051017
  3. OXYGEN [Concomitant]
  4. ANTIBIOTICS [Concomitant]

REACTIONS (9)
  - COAGULOPATHY [None]
  - HAEMOPTYSIS [None]
  - HAEMORRHAGIC DISORDER [None]
  - HEPATIC CONGESTION [None]
  - HYPOXIA [None]
  - INTERNATIONAL NORMALISED RATIO INCREASED [None]
  - PULMONARY HAEMORRHAGE [None]
  - RESPIRATORY FAILURE [None]
  - RIGHT VENTRICULAR FAILURE [None]
